FAERS Safety Report 10935084 (Version 1)
Quarter: 2015Q1

REPORT INFORMATION
  Report Type: Spontaneous
  Country: DE (occurrence: DE)
  Receive Date: 20150320
  Receipt Date: 20150320
  Transmission Date: 20150721
  Serious: Yes (Other)
  Sender: FDA-Public Use
  Company Number: DE-ACTELION-A-CH2015-114188

PATIENT
  Age: 66 Year
  Sex: Male
  Weight: 111 kg

DRUGS (9)
  1. INDACATEROL [Concomitant]
     Active Substance: INDACATEROL
     Dosage: UNK, QD
  2. TORASEMID [Concomitant]
     Active Substance: TORSEMIDE
  3. OPSUMIT [Suspect]
     Active Substance: MACITENTAN
     Indication: PULMONARY ARTERIAL HYPERTENSION
     Dosage: UNK
     Route: 048
     Dates: end: 20150101
  4. TAMSULOSIN [Concomitant]
     Active Substance: TAMSULOSIN
     Dosage: 0.4 UNK, QD
  5. METOPROLOL [Concomitant]
     Active Substance: METOPROLOL
     Dosage: 95 UNK, QD
  6. MIFLONIDE [Concomitant]
     Active Substance: BUDESONIDE
     Route: 055
  7. TOLU [Concomitant]
     Dosage: UNK, QD
  8. SILDENAFIL. [Concomitant]
     Active Substance: SILDENAFIL
     Dosage: 20 MG, BID
     Route: 048
  9. BERODUAL [Concomitant]
     Active Substance: FENOTEROL HYDROBROMIDE\IPRATROPIUM BROMIDE
     Route: 055

REACTIONS (1)
  - Gout [Recovered/Resolved]
